FAERS Safety Report 18420418 (Version 1)
Quarter: 2020Q4

REPORT INFORMATION
  Report Type: Spontaneous
  Country: US (occurrence: US)
  Receive Date: 20201023
  Receipt Date: 20201023
  Transmission Date: 20210114
  Serious: Yes (Hospitalization)
  Sender: FDA-Public Use
  Company Number: None

PATIENT
  Sex: Female

DRUGS (17)
  1. CLOPIDOGREL [Concomitant]
     Active Substance: CLOPIDOGREL BISULFATE
  2. ROSUVASTATIN. [Concomitant]
     Active Substance: ROSUVASTATIN
  3. CALCIUM [Concomitant]
     Active Substance: CALCIUM
  4. JANUVIA [Concomitant]
     Active Substance: SITAGLIPTIN PHOSPHATE
  5. DALFAMPRIDINE. [Suspect]
     Active Substance: DALFAMPRIDINE
     Indication: MULTIPLE SCLEROSIS
     Route: 048
     Dates: start: 20181217
  6. FERROUS [Concomitant]
     Active Substance: IRON
  7. GLIPIZIDE. [Concomitant]
     Active Substance: GLIPIZIDE
  8. LORTREL [Concomitant]
  9. METOPROLOL TARTRATE. [Concomitant]
     Active Substance: METOPROLOL TARTRATE
  10. MELATONIN [Concomitant]
     Active Substance: MELATONIN
  11. QUIETAPINE [Concomitant]
  12. COENZYME Q10 [Concomitant]
     Active Substance: DIETARY SUPPLEMENT\UBIDECARENONE
  13. ECOTRIN LOW [Concomitant]
  14. MIRTAZAPINE. [Concomitant]
     Active Substance: MIRTAZAPINE
  15. OXYBUTYNIN. [Concomitant]
     Active Substance: OXYBUTYNIN CHLORIDE
  16. PRESEVISION [Concomitant]
  17. RANITDINE [Concomitant]

REACTIONS (2)
  - Fall [None]
  - Hip fracture [None]
